FAERS Safety Report 6355183-3 (Version None)
Quarter: 2009Q3

REPORT INFORMATION
  Report Type: 
  Country: None (occurrence: None)
  Receive Date: 20090914
  Receipt Date: 20090902
  Transmission Date: 20100115
  Serious: Yes (Other)
  Sender: FDA-Public Use
  Company Number: US-PFIZER INC-2009265276

PATIENT
  Sex: Female
  Weight: 53.515 kg

DRUGS (2)
  1. SOLU-MEDROL [Suspect]
     Route: 041
     Dates: start: 20070116
  2. BETASERON [Concomitant]

REACTIONS (2)
  - RASH [None]
  - URTICARIA [None]
